FAERS Safety Report 5084920-3 (Version None)
Quarter: 2006Q3

REPORT INFORMATION
  Report Type: 
  Country: None (occurrence: None)
  Receive Date: 20060821
  Receipt Date: 20060817
  Transmission Date: 20061208
  Serious: Yes (Hospitalization)
  Sender: FDA-Public Use
  Company Number: US-BOEHRINGER INGELHEIM PHARMACEUTICALS, INC.-2006-BP-09553BP

PATIENT
  Age: 37 Year
  Sex: Male

DRUGS (14)
  1. APTIVUS/RITONAVIR CAPSULES [Suspect]
     Indication: HIV INFECTION
     Route: 048
  2. MEGACE [Concomitant]
  3. PRAVACHOL [Concomitant]
  4. DARAPRIM [Concomitant]
  5. BUSPAR [Concomitant]
  6. KEPPRA [Concomitant]
  7. SEREVENT [Concomitant]
  8. CHOLESTYRAMINE [Concomitant]
  9. CELEXA [Concomitant]
  10. SULFADIAZINE [Concomitant]
  11. ZYPREXA [Concomitant]
  12. LEUCOVORIN CALCIUM [Concomitant]
  13. TRUVADA [Concomitant]
  14. FUZEON [Concomitant]

REACTIONS (5)
  - BLOOD PRESSURE INCREASED [None]
  - DRUG INEFFECTIVE [None]
  - HAEMORRHAGE INTRACRANIAL [None]
  - MALAISE [None]
  - MENTAL STATUS CHANGES [None]
